FAERS Safety Report 8566575 (Version 2)
Quarter: 2012Q4

REPORT INFORMATION
  Report Type: 
  Country: BR (occurrence: BR)
  Receive Date: 20120517
  Receipt Date: 20121109
  Transmission Date: 20130627
  Serious: Yes (Hospitalization, Other)
  Sender: FDA-Public Use
  Company Number: BR-ASTRAZENECA-2012SE30183

PATIENT
  Sex: Male

DRUGS (6)
  1. BRILINTA [Suspect]
     Indication: CARDIOVASCULAR EVENT PROPHYLAXIS
     Route: 048
     Dates: start: 201112, end: 201209
  2. UNKNOWN [Suspect]
     Indication: COAGULOPATHY
  3. DIOVAN [Concomitant]
  4. AMIODARONE [Concomitant]
  5. SOMALGIN [Concomitant]
  6. LIPITOR [Concomitant]

REACTIONS (3)
  - Venous occlusion [Not Recovered/Not Resolved]
  - Urethral haemorrhage [Recovered/Resolved]
  - Off label use [Recovered/Resolved]
